FAERS Safety Report 14784228 (Version 3)
Quarter: 2018Q4

REPORT INFORMATION
  Report Type: Spontaneous
  Country: FR (occurrence: FR)
  Receive Date: 20180420
  Receipt Date: 20181001
  Transmission Date: 20190204
  Serious: Yes (Hospitalization, Other)
  Sender: FDA-Public Use
  Company Number: FR-MYLANLABS-2018M1024699

PATIENT
  Age: 29 Year
  Sex: Female
  Weight: 50 kg

DRUGS (5)
  1. DI-ANTALVIC [Suspect]
     Active Substance: ACETAMINOPHEN\PROPOXYPHENE HYDROCHLORIDE
     Indication: ILL-DEFINED DISORDER
     Dosage: 2 DF, QD,2CAPSULES/DAY
     Route: 048
  2. ANDROCUR [Suspect]
     Active Substance: CYPROTERONE ACETATE
     Dosage: 50 MG, QD
     Route: 048
     Dates: start: 2012, end: 201711
  3. ANDROCUR [Suspect]
     Active Substance: CYPROTERONE ACETATE
     Indication: VIRILISM
     Dosage: 50 MG, QD,50 MG/DAY
     Route: 048
     Dates: start: 20040615
  4. ANDROCUR [Suspect]
     Active Substance: CYPROTERONE ACETATE
     Dosage: 1 DF, QD
     Route: 065
     Dates: start: 2012, end: 201711
  5. ESTRADIOL. [Suspect]
     Active Substance: ESTRADIOL
     Indication: PRODUCT USED FOR UNKNOWN INDICATION
     Dosage: 1 DF, QD,1 DOSAGE FORM ONCE DAILY
     Route: 065
     Dates: start: 2012, end: 201711

REACTIONS (7)
  - Meningioma [Unknown]
  - Mood swings [Unknown]
  - Frontotemporal dementia [Unknown]
  - Irritability [Unknown]
  - Aphasia [Unknown]
  - Headache [Unknown]
  - Amnesia [Unknown]

NARRATIVE: CASE EVENT DATE: 20171122
